FAERS Safety Report 11301917 (Version 2)
Quarter: 2015Q3

REPORT INFORMATION
  Report Type: Spontaneous
  Country: US (occurrence: US)
  Receive Date: 20150722
  Receipt Date: 20150916
  Transmission Date: 20151125
  Serious: No
  Sender: FDA-Public Use
  Company Number: US-ELI_LILLY_AND_COMPANY-USA050496446

PATIENT
  Age: 74 Year
  Sex: Female

DRUGS (7)
  1. FORTEO [Suspect]
     Active Substance: TERIPARATIDE
     Indication: OSTEOPOROSIS
     Dosage: 20 UG, DAILY (1/D)
     Dates: start: 20050414, end: 200704
  2. CALCIUM [Concomitant]
     Active Substance: CALCIUM
     Dosage: 1500 MG, DAILY (1/D)
  3. CALCIUM [Concomitant]
     Active Substance: CALCIUM
     Dosage: 900 MG, DAILY (1/D)
  4. EVISTA [Suspect]
     Active Substance: RALOXIFENE HYDROCHLORIDE
     Indication: OSTEOPOROSIS
     Dosage: 60 MG, DAILY (1/D)
     Dates: start: 200210, end: 20050414
  5. CALCIUM [Concomitant]
     Active Substance: CALCIUM
     Dosage: 800 MG, DAILY (1/D)
  6. CALCIUM [Concomitant]
     Active Substance: CALCIUM
     Dosage: 1700 MG, DAILY (1/D)
  7. EVISTA [Suspect]
     Active Substance: RALOXIFENE HYDROCHLORIDE
     Dosage: 60 MG, DAILY (1/D)
     Dates: start: 20070519, end: 200706

REACTIONS (8)
  - Nausea [Recovered/Resolved]
  - Muscular weakness [Recovered/Resolved]
  - Glaucoma surgery [Recovered/Resolved]
  - Muscle spasms [Recovered/Resolved]
  - Muscle spasms [Recovered/Resolved]
  - Fatigue [Unknown]
  - Lip swelling [Unknown]
  - Muscle spasms [Recovered/Resolved]

NARRATIVE: CASE EVENT DATE: 20050423
